FAERS Safety Report 9339360 (Version 2)
Quarter: 2013Q3

REPORT INFORMATION
  Report Type: Spontaneous
  Country: US (occurrence: US)
  Receive Date: 20130610
  Receipt Date: 20130731
  Transmission Date: 20140515
  Serious: Yes (Other)
  Sender: FDA-Public Use
  Company Number: US-NOVOPROD-379894

PATIENT
  Age: 9 Year
  Sex: Female
  Weight: 22.1 kg

DRUGS (1)
  1. NORDITROPIN FLEXPRO [Suspect]
     Indication: BODY HEIGHT BELOW NORMAL
     Dosage: 1.1 MG QD
     Route: 058

REACTIONS (1)
  - Turner^s syndrome [Recovered/Resolved]
